FAERS Safety Report 23915243 (Version 1)
Quarter: 2024Q2

REPORT INFORMATION
  Report Type: Report from Study
  Country: CA (occurrence: CA)
  Receive Date: 20240529
  Receipt Date: 20240529
  Transmission Date: 20240716
  Serious: Yes (Other)
  Sender: FDA-Public Use
  Company Number: CA-PFIZER INC-202400180028

PATIENT
  Age: 12 Year
  Sex: Female

DRUGS (2)
  1. RITUXIMAB [Suspect]
     Active Substance: RITUXIMAB
     Dosage: UNK
     Route: 065
  2. DAPSONE [Concomitant]
     Active Substance: DAPSONE

REACTIONS (4)
  - Blindness [Unknown]
  - Drug intolerance [Unknown]
  - Immunodeficiency [Unknown]
  - Neuromyelitis optica spectrum disorder [Unknown]
